FAERS Safety Report 8846577 (Version 1)
Quarter: 2012Q4

REPORT INFORMATION
  Report Type: 
  Country: ES (occurrence: ES)
  Receive Date: 20121017
  Receipt Date: 20121017
  Transmission Date: 20130627
  Serious: Yes (Hospitalization)
  Sender: FDA-Public Use
  Company Number: ES-BAYER-2012-108588

PATIENT
  Sex: Male

DRUGS (6)
  1. ACARBOSE [Suspect]
     Indication: TYPE 2 DIABETES MELLITUS
     Dosage: 100 mg, UNK
     Route: 048
     Dates: end: 20090328
  2. DIAMICRON [Suspect]
     Indication: TYPE 2 DIABETES MELLITUS
     Dosage: 30 mg, UNK
     Dates: end: 20090328
  3. ISOPHANE INSULIN [Suspect]
     Indication: TYPE 2 DIABETES MELLITUS
     Dosage: UNK
     Route: 058
     Dates: start: 2001, end: 20090328
  4. TEBETANE COMPUESTO [Concomitant]
  5. OMNIC [Concomitant]
     Dosage: 0.4 mg, UNK
  6. VENTOLINE [Concomitant]
     Dosage: 100 ?g, UNK

REACTIONS (1)
  - Hypoglycaemia [Recovered/Resolved]
